FAERS Safety Report 10159378 (Version 1)
Quarter: 2014Q2

REPORT INFORMATION
  Report Type: Spontaneous
  Country: US (occurrence: US)
  Receive Date: 20140508
  Receipt Date: 20140508
  Transmission Date: 20141212
  Serious: No
  Sender: FDA-Public Use
  Company Number: US-MYLANLABS-2014S1003688

PATIENT
  Age: 40 Year
  Sex: Male
  Weight: 117.94 kg

DRUGS (4)
  1. ITRACONAZOLE CAPSULES [Suspect]
     Indication: HISTOPLASMOSIS DISSEMINATED
     Route: 048
     Dates: start: 201310
  2. RANITIDINE [Concomitant]
  3. PROBIOTIC /06395501/ [Concomitant]
  4. MULTIVITAMIN [Concomitant]

REACTIONS (3)
  - Drug ineffective [Not Recovered/Not Resolved]
  - Histoplasmosis disseminated [Not Recovered/Not Resolved]
  - Lymphadenopathy [Not Recovered/Not Resolved]
